FAERS Safety Report 4315442-2 (Version None)
Quarter: 2004Q1

REPORT INFORMATION
  Report Type: 
  Country: None (occurrence: None)
  Receive Date: 20040309
  Receipt Date: 20040219
  Transmission Date: 20041129
  Serious: Yes (Hospitalization)
  Sender: FDA-Public Use
  Company Number: US_031299201

PATIENT
  Age: 31 Year
  Sex: Female

DRUGS (2)
  1. GEMZAR [Suspect]
     Indication: OVARIAN CANCER
     Dates: start: 20030813, end: 20031022
  2. TAXOTERE [Concomitant]

REACTIONS (8)
  - CARDIAC DISORDER [None]
  - CARDIAC TAMPONADE [None]
  - INFLAMMATION [None]
  - LUNG INFILTRATION [None]
  - PERICARDIAL DISEASE [None]
  - PERICARDIAL EFFUSION [None]
  - PLEURAL EFFUSION [None]
  - PNEUMONITIS [None]
